FAERS Safety Report 5954520-9 (Version None)
Quarter: 2008Q4

REPORT INFORMATION
  Report Type: 
  Country: None (occurrence: None)
  Receive Date: 20081113
  Receipt Date: 20081031
  Transmission Date: 20090506
  Serious: Yes (Other)
  Sender: FDA-Public Use
  Company Number: 230039M08FRA

PATIENT
  Age: 41 Year
  Sex: Male
  Weight: 64 kg

DRUGS (4)
  1. REBIF [Suspect]
     Indication: MULTIPLE SCLEROSIS
     Dates: start: 20060101
  2. ACETAMINOPHEN [Concomitant]
  3. CALCIUM (CALCIUM-S-ANDOZ/00009901/) [Concomitant]
  4. LIORESAL [Concomitant]

REACTIONS (3)
  - INJECTION SITE PUSTULE [None]
  - IRIDOCYCLITIS [None]
  - UVEITIS [None]
